FAERS Safety Report 9437190 (Version 2)
Quarter: 2014Q2

REPORT INFORMATION
  Report Type: Report from Study
  Country: AR (occurrence: AR)
  Receive Date: 20130802
  Receipt Date: 20140512
  Transmission Date: 20141212
  Serious: Yes (Other)
  Sender: FDA-Public Use
  Company Number: PHHY2013AR080586

PATIENT
  Sex: Female

DRUGS (2)
  1. TOBI [Suspect]
     Dosage: UNK UKN, UNK
  2. TOBI PODHALER [Suspect]
     Indication: CYSTIC FIBROSIS
     Dosage: UNK UKN, BID

REACTIONS (5)
  - Deafness [Recovering/Resolving]
  - Snoring [Recovering/Resolving]
  - Dental caries [Unknown]
  - Dysgeusia [Unknown]
  - Throat irritation [Unknown]
